FAERS Safety Report 19097544 (Version 1)
Quarter: 2021Q2

REPORT INFORMATION
  Report Type: Spontaneous
  Country: US (occurrence: US)
  Receive Date: 20210406
  Receipt Date: 20210406
  Transmission Date: 20210717
  Serious: No
  Sender: FDA-Public Use
  Company Number: None

PATIENT
  Age: 58 Year
  Sex: Female

DRUGS (4)
  1. ADVIL DUAL [Concomitant]
  2. CENTRUM [Concomitant]
     Active Substance: VITAMINS
  3. COVID?19 VACCINE NOS. [Suspect]
     Active Substance: COVID-19 VACCINE NOS
  4. CLINDAMYCIN HCL 150MG CAPSULE [Suspect]
     Active Substance: CLINDAMYCIN HYDROCHLORIDE
     Indication: FOOT OPERATION
     Dosage: ?          QUANTITY:1 CAPSULE(S);?
     Route: 048
     Dates: start: 20210402, end: 20210405

REACTIONS (4)
  - Abdominal pain [None]
  - Pollakiuria [None]
  - Micturition urgency [None]
  - Headache [None]

NARRATIVE: CASE EVENT DATE: 20210405
